FAERS Safety Report 12989090 (Version 7)
Quarter: 2017Q3

REPORT INFORMATION
  Report Type: Spontaneous
  Country: US (occurrence: US)
  Receive Date: 20161201
  Receipt Date: 20170919
  Transmission Date: 20171127
  Serious: Yes (Hospitalization)
  Sender: FDA-Public Use
  Company Number: US-ACTELION-A-NJ2016-146226

PATIENT
  Age: 50 Year
  Sex: Female

DRUGS (9)
  1. BONIVA [Concomitant]
     Active Substance: IBANDRONATE SODIUM
  2. REMODULIN [Concomitant]
     Active Substance: TREPROSTINIL
     Dosage: 84 NG/KG, PER MIN
     Dates: start: 20140828
  3. OPSUMIT [Suspect]
     Active Substance: MACITENTAN
     Indication: PULMONARY ARTERIAL HYPERTENSION
     Dosage: 10 MG, QD
     Route: 048
     Dates: start: 20160915
  4. ZANTAC [Concomitant]
     Active Substance: RANITIDINE HYDROCHLORIDE
  5. LIPITOR [Concomitant]
     Active Substance: ATORVASTATIN CALCIUM
  6. DIGOXIN. [Concomitant]
     Active Substance: DIGOXIN
  7. TORSEMIDE. [Concomitant]
     Active Substance: TORSEMIDE
  8. ZYRTEC [Concomitant]
     Active Substance: CETIRIZINE HYDROCHLORIDE
  9. PHENOBARBITAL. [Concomitant]
     Active Substance: PHENOBARBITAL

REACTIONS (11)
  - Dyspnoea [Unknown]
  - Rash [Not Recovered/Not Resolved]
  - Gastritis [Unknown]
  - Intestinal polyp [Unknown]
  - Pneumonia [Recovering/Resolving]
  - Pyrexia [Not Recovered/Not Resolved]
  - Rhinovirus infection [Unknown]
  - Catheter site haemorrhage [Recovered/Resolved]
  - Oedema peripheral [Unknown]
  - Oxygen therapy [Not Recovered/Not Resolved]
  - Diarrhoea [Unknown]

NARRATIVE: CASE EVENT DATE: 20161102
